FAERS Safety Report 18621411 (Version 1)
Quarter: 2020Q4

REPORT INFORMATION
  Report Type: Spontaneous
  Country: HR (occurrence: HR)
  Receive Date: 20201216
  Receipt Date: 20201216
  Transmission Date: 20210114
  Serious: Yes (Other)
  Sender: FDA-Public Use
  Company Number: HR-ABBVIE-20K-216-3693486-00

PATIENT
  Age: 26 Year
  Sex: Male
  Weight: 85 kg

DRUGS (1)
  1. HUMIRA [Suspect]
     Active Substance: ADALIMUMAB
     Indication: CROHN^S DISEASE
     Route: 058
     Dates: start: 201808, end: 202012

REACTIONS (3)
  - Crohn^s disease [Recovered/Resolved]
  - Loss of therapeutic response [Recovered/Resolved]
  - Endoscopy abnormal [Recovered/Resolved]

NARRATIVE: CASE EVENT DATE: 202011
